FAERS Safety Report 17097198 (Version 2)
Quarter: 2020Q1

REPORT INFORMATION
  Report Type: Spontaneous
  Country: FR (occurrence: FR)
  Receive Date: 20191202
  Receipt Date: 20200319
  Transmission Date: 20200409
  Serious: Yes (Hospitalization)
  Sender: FDA-Public Use
  Company Number: FR-ACCORD-163231

PATIENT
  Age: 73 Year
  Sex: Female

DRUGS (9)
  1. SIMVASTATIN. [Suspect]
     Active Substance: SIMVASTATIN
     Indication: DYSLIPIDAEMIA
     Route: 048
     Dates: end: 20191010
  2. INEXIUM [Concomitant]
     Active Substance: ESOMEPRAZOLE
  3. ZYMAD [Concomitant]
     Active Substance: CHOLECALCIFEROL
  4. MIRTAZAPINE. [Concomitant]
     Active Substance: MIRTAZAPINE
  5. NORMACOL [Concomitant]
     Active Substance: HERBALS\KARAYA GUM
  6. CLOZAPINE. [Suspect]
     Active Substance: CLOZAPINE
     Indication: PSYCHOTIC DISORDER
     Route: 048
     Dates: start: 2018, end: 20191011
  7. DOLIPRAN [Concomitant]
     Dosage: STRENGTH:500 MG  POWDER FOR ORAL SOLUTION IN SACHET-DOSE
  8. GAVISCON [Concomitant]
     Active Substance: ALUMINUM HYDROXIDE\MAGNESIUM CARBONATE
  9. DUPHALAC [Concomitant]
     Active Substance: LACTULOSE

REACTIONS (1)
  - Pleural effusion [Recovered/Resolved]

NARRATIVE: CASE EVENT DATE: 20191010
